FAERS Safety Report 10220394 (Version 2)
Quarter: 2014Q2

REPORT INFORMATION
  Report Type: Report from Study
  Country: CA (occurrence: CA)
  Receive Date: 20140606
  Receipt Date: 20140623
  Transmission Date: 20141212
  Serious: Yes (Hospitalization)
  Sender: FDA-Public Use
  Company Number: CA-BIOGENIDEC-2014BI053029

PATIENT
  Age: 26 Year
  Sex: Female

DRUGS (4)
  1. TYSABRI [Suspect]
     Indication: RELAPSING-REMITTING MULTIPLE SCLEROSIS
     Route: 042
     Dates: start: 20131108
  2. CITALOPRAM [Concomitant]
  3. FLOMAX [Concomitant]
  4. AMITRIPTYLINE [Concomitant]

REACTIONS (5)
  - Micturition urgency [Unknown]
  - Urinary retention [Unknown]
  - Upper respiratory tract infection [Unknown]
  - Nasopharyngitis [Unknown]
  - Multiple sclerosis relapse [Not Recovered/Not Resolved]
